FAERS Safety Report 12186702 (Version 1)
Quarter: 2016Q1

REPORT INFORMATION
  Report Type: Spontaneous
  Country: US (occurrence: None)
  Receive Date: 20160316
  Receipt Date: 20160316
  Transmission Date: 20160526
  Serious: Yes (Hospitalization)
  Sender: FDA-Public Use
  Company Number: None

PATIENT
  Age: 81 Year
  Sex: Male
  Weight: 86.4 kg

DRUGS (1)
  1. WARFARIN [Suspect]
     Active Substance: WARFARIN
     Indication: HAEMATOMA
     Route: 048
     Dates: start: 20061206

REACTIONS (9)
  - Fall [None]
  - Swelling [None]
  - Joint injury [None]
  - Haematoma [None]
  - Haemoglobin decreased [None]
  - Mental status changes [None]
  - Erythema [None]
  - Meniscus injury [None]
  - International normalised ratio increased [None]

NARRATIVE: CASE EVENT DATE: 20151003
